FAERS Safety Report 7241091-2 (Version None)
Quarter: 2011Q1

REPORT INFORMATION
  Report Type: 
  Country: None (occurrence: None)
  Receive Date: 20110124
  Receipt Date: 20110118
  Transmission Date: 20110831
  Serious: Yes (Hospitalization, Disabling)
  Sender: FDA-Public Use
  Company Number: DE-PFIZER INC-2011011528

PATIENT
  Age: 48 Year

DRUGS (2)
  1. TREVILOR RETARD [Suspect]
     Indication: ANXIETY DISORDER
     Dosage: 150 MG, FREQUENCY UNKNOWN
  2. MARCOUMAR [Concomitant]
     Indication: ATRIAL FIBRILLATION
     Dosage: UNKNOWN

REACTIONS (1)
  - EMBOLISM ARTERIAL [None]
